FAERS Safety Report 16323231 (Version 2)
Quarter: 2019Q2

REPORT INFORMATION
  Report Type: Spontaneous
  Country: AT (occurrence: AT)
  Receive Date: 20190517
  Receipt Date: 20190603
  Transmission Date: 20190711
  Serious: Yes (Hospitalization, Other)
  Sender: FDA-Public Use
  Company Number: AT-ASTELLAS-2019US020835

PATIENT
  Age: 61 Year
  Sex: Female

DRUGS (3)
  1. ERLOTINIB [Suspect]
     Active Substance: ERLOTINIB
     Indication: ADENOCARCINOMA
     Dosage: 150 MG, ONCE DAILY (1-0-0)
     Route: 048
     Dates: start: 20170514
  2. ERLOTINIB [Suspect]
     Active Substance: ERLOTINIB
     Dosage: 100 MG, ONCE DAILY (1-0-0)
     Route: 048
     Dates: start: 20170721
  3. ERLOTINIB [Suspect]
     Active Substance: ERLOTINIB
     Dosage: 100 MG, OTHER (ALTERNATE DAYS)
     Route: 048

REACTIONS (2)
  - EGFR gene mutation [Unknown]
  - Cholecystitis acute [Unknown]

NARRATIVE: CASE EVENT DATE: 20170721
